FAERS Safety Report 9768886 (Version 1)
Quarter: 2013Q3

REPORT INFORMATION
  Report Type: Spontaneous
  Country: US (occurrence: None)
  Receive Date: 20130903
  Receipt Date: 20130903
  Transmission Date: 20140520
  Serious: Yes (Hospitalization)
  Sender: FDA-Public Use
  Company Number: 40965

PATIENT
  Age: 68 Year
  Sex: Female

DRUGS (4)
  1. GLASSIA (ALPHA-PROTEINASE INHIBITOR (HUMAN)) KAMADA [Suspect]
     Indication: ALPHA-1 ANTI-TRYPSIN DEFICIENCY
     Dates: start: 20130130
  2. OXYGEN AT NIGHT [Concomitant]
  3. VENTILATOR [Concomitant]
  4. BI-PAP MACHINE [Concomitant]

REACTIONS (3)
  - Cardiac failure congestive [None]
  - Respiratory failure [None]
  - Economic problem [None]
